FAERS Safety Report 21687287 (Version 2)
Quarter: 2022Q4

REPORT INFORMATION
  Report Type: Report from Study
  Country: RU (occurrence: RU)
  Receive Date: 20221206
  Receipt Date: 20221212
  Transmission Date: 20230112
  Serious: No
  Sender: FDA-Public Use
  Company Number: RU-ViiV Healthcare Limited-RU2022GSK155634

PATIENT

DRUGS (4)
  1. DOLUTEGRAVIR [Suspect]
     Active Substance: DOLUTEGRAVIR
     Indication: HIV infection
     Dosage: 50 MG, QD
     Route: 048
     Dates: start: 20200731, end: 20220309
  2. LAMIVUDINE [Concomitant]
     Active Substance: LAMIVUDINE
     Indication: HIV infection
     Dosage: 300 MG, QD
     Route: 048
     Dates: start: 20200731
  3. RALTEGRAVIR [Concomitant]
     Active Substance: RALTEGRAVIR
     Indication: HIV infection
     Dosage: 800 MG, QD
     Route: 048
     Dates: start: 20220310
  4. TENOFOVIR [Concomitant]
     Active Substance: TENOFOVIR
     Indication: HIV infection
     Dosage: 300 MG, QD
     Route: 048
     Dates: start: 20200731

REACTIONS (2)
  - Live birth [Unknown]
  - Exposure during pregnancy [Unknown]

NARRATIVE: CASE EVENT DATE: 20221004
